FAERS Safety Report 7469551-X (Version None)
Quarter: 2011Q2

REPORT INFORMATION
  Report Type: 
  Country: None (occurrence: None)
  Receive Date: 20110510
  Receipt Date: 20110428
  Transmission Date: 20111010
  Serious: No
  Sender: FDA-Public Use
  Company Number: PHHY2011US28675

PATIENT
  Sex: Female
  Weight: 90.703 kg

DRUGS (8)
  1. MULTI-VITAMINS [Concomitant]
  2. MOTRIN [Concomitant]
  3. METFORMIN HCL [Concomitant]
  4. TASIGNA [Suspect]
     Indication: ACUTE MYELOID LEUKAEMIA
     Dosage: 300 MG, BID
     Route: 048
     Dates: start: 20100721
  5. ZOCOR [Concomitant]
  6. CLARITIN [Concomitant]
  7. ALLOPURINOL [Concomitant]
  8. ZANTAC [Concomitant]

REACTIONS (2)
  - MEMORY IMPAIRMENT [None]
  - LABELLED DRUG-FOOD INTERACTION MEDICATION ERROR [None]
